FAERS Safety Report 5250739-3 (Version None)
Quarter: 2007Q1

REPORT INFORMATION
  Report Type: 
  Country: None (occurrence: None)
  Receive Date: 20070228
  Receipt Date: 20060717
  Transmission Date: 20070707
  Serious: No
  Sender: FDA-Public Use
  Company Number: US-GLAXOSMITHKLINE-A0610779A

PATIENT
  Age: 50 Year
  Sex: Female

DRUGS (7)
  1. LAMICTAL [Suspect]
     Indication: BIPOLAR DISORDER
     Dosage: 150MG PER DAY
     Route: 048
     Dates: start: 20060301
  2. WELLBUTRIN [Concomitant]
  3. CYMBALTA [Concomitant]
  4. PERCOCET [Concomitant]
  5. LUNESTA [Concomitant]
  6. XANAX [Concomitant]
  7. DITROPAN [Concomitant]

REACTIONS (2)
  - PRURITUS [None]
  - RASH [None]
